FAERS Safety Report 17042534 (Version 1)
Quarter: 2019Q4

REPORT INFORMATION
  Report Type: Spontaneous
  Country: CA (occurrence: CA)
  Receive Date: 20191118
  Receipt Date: 20191118
  Transmission Date: 20200122
  Serious: Yes (Hospitalization, Other)
  Sender: FDA-Public Use
  Company Number: CA-PFIZER INC-2019490718

PATIENT
  Age: 17 Year
  Sex: Female
  Weight: 80 kg

DRUGS (9)
  1. PREDNISONE. [Concomitant]
     Active Substance: PREDNISONE
     Dosage: UNK
  2. DEXAMETHASONE. [Concomitant]
     Active Substance: DEXAMETHASONE
     Dosage: UNK
  3. VINBLASTINE SULFATE. [Concomitant]
     Active Substance: VINBLASTINE SULFATE
     Dosage: UNK
  4. CYCLOPHOSPHAMIDE. [Concomitant]
     Active Substance: CYCLOPHOSPHAMIDE
     Dosage: UNK
  5. VINCRISTINE SULFATE. [Suspect]
     Active Substance: VINCRISTINE SULFATE
     Indication: HODGKIN^S DISEASE
     Dosage: UNK
     Route: 042
  6. BLEOMYCIN SULPHATE [Concomitant]
     Active Substance: BLEOMYCIN SULFATE
     Dosage: UNK
  7. DACARBAZINE. [Concomitant]
     Active Substance: DACARBAZINE
     Dosage: UNK
     Route: 042
  8. DOXORUBICIN HYDROCHLORIDE INJECTION [Concomitant]
     Active Substance: DOXORUBICIN HYDROCHLORIDE
     Dosage: UNK
  9. ETOPOSIDE. [Concomitant]
     Active Substance: ETOPOSIDE
     Dosage: UNK

REACTIONS (9)
  - Musculoskeletal chest pain [Not Recovered/Not Resolved]
  - Ileus [Not Recovered/Not Resolved]
  - Joint stiffness [Not Recovered/Not Resolved]
  - Pain [Not Recovered/Not Resolved]
  - Arthralgia [Not Recovered/Not Resolved]
  - Pain in jaw [Not Recovered/Not Resolved]
  - Muscle spasms [Not Recovered/Not Resolved]
  - Mobility decreased [Not Recovered/Not Resolved]
  - Neuropathy peripheral [Not Recovered/Not Resolved]
